FAERS Safety Report 7721747-5 (Version None)
Quarter: 2011Q3

REPORT INFORMATION
  Report Type: 
  Country: None (occurrence: None)
  Receive Date: 20110825
  Receipt Date: 20110809
  Transmission Date: 20111222
  Serious: Yes (Hospitalization)
  Sender: FDA-Public Use
  Company Number: 2011MA011591

PATIENT
  Age: 53 Day
  Sex: Female

DRUGS (1)
  1. FEVERALL [Suspect]
     Indication: MASTITIS

REACTIONS (3)
  - RESPIRATORY SYNCYTIAL VIRUS TEST POSITIVE [None]
  - EXPOSURE DURING BREAST FEEDING [None]
  - BRONCHIOLITIS [None]
